FAERS Safety Report 8950880 (Version 1)
Quarter: 2012Q4

REPORT INFORMATION
  Report Type: Spontaneous
  Country: GB (occurrence: None)
  Receive Date: 20121128
  Receipt Date: 20121128
  Transmission Date: 20130627
  Serious: Yes (Other)
  Sender: FDA-Public Use
  Company Number: 1502695

PATIENT
  Sex: Male

DRUGS (4)
  1. CALCIUM FOLINATE [Suspect]
     Indication: DRUG USE FOR UNKNOWN INDICATION
  2. IRINOTECAN HYDROCHLORIDE [Suspect]
     Indication: DRUG USE FOR UNKNOWN INDICATION
  3. FLUOROURACIL [Suspect]
     Indication: DRUG USE FOR UNKNOWN INDICATION
  4. AVASTIN [Suspect]
     Indication: DRUG USE FOR UNKNOWN INDICATION

REACTIONS (1)
  - Deep vein thrombosis [None]
